FAERS Safety Report 22258938 (Version 2)
Quarter: 2023Q2

REPORT INFORMATION
  Report Type: Report from Study
  Country: AR (occurrence: AR)
  Receive Date: 20230427
  Receipt Date: 20230517
  Transmission Date: 20230722
  Serious: Yes (Death, Hospitalization)
  Sender: FDA-Public Use
  Company Number: AR-002147023-NVSC2023AR095611

PATIENT
  Age: 53 Year
  Sex: Female

DRUGS (1)
  1. KISQALI [Suspect]
     Active Substance: RIBOCICLIB
     Indication: Breast cancer metastatic
     Dosage: UNK
     Route: 065
     Dates: start: 20220615

REACTIONS (6)
  - Generalised oedema [Fatal]
  - Confusional state [Fatal]
  - Delirium [Fatal]
  - Blood creatinine increased [Fatal]
  - Hepatic failure [Fatal]
  - Metastases to liver [Fatal]

NARRATIVE: CASE EVENT DATE: 20221212
